FAERS Safety Report 11831328 (Version 1)
Quarter: 2015Q4

REPORT INFORMATION
  Report Type: Spontaneous
  Country: US (occurrence: None)
  Receive Date: 20151211
  Receipt Date: 20151211
  Transmission Date: 20160305
  Serious: Yes (Hospitalization)
  Sender: FDA-Public Use
  Company Number: None

PATIENT
  Age: 49 Year
  Sex: Male
  Weight: 100.5 kg

DRUGS (14)
  1. MAGNESIUM OXIDE. [Concomitant]
     Active Substance: MAGNESIUM OXIDE
  2. MORPHINE [Concomitant]
     Active Substance: MORPHINE
  3. ENTYVIO [Suspect]
     Active Substance: VEDOLIZUMAB
     Indication: COLITIS ULCERATIVE
     Dosage: EVERY 8 WEEKS
     Route: 042
     Dates: end: 20151111
  4. ASPIRIN. [Concomitant]
     Active Substance: ASPIRIN
  5. DOCUSATE [Concomitant]
     Active Substance: DOCUSATE
  6. HYDROCORTISONE. [Concomitant]
     Active Substance: HYDROCORTISONE
  7. FLUCONAZOLE. [Concomitant]
     Active Substance: FLUCONAZOLE
  8. URSODIOL. [Concomitant]
     Active Substance: URSODIOL
  9. LEVOFLOXACIN. [Concomitant]
     Active Substance: LEVOFLOXACIN
  10. SERTRALINE [Concomitant]
     Active Substance: SERTRALINE HYDROCHLORIDE
  11. PREDNISONE. [Concomitant]
     Active Substance: PREDNISONE
  12. TACROLIMUS. [Concomitant]
     Active Substance: TACROLIMUS
  13. MYCOPHENOLATE MOFETIL (CELLCEPT) [Concomitant]
  14. VALGANCYCLOVIR [Concomitant]
     Active Substance: VALGANCICLOVIR

REACTIONS (4)
  - Liver transplant [None]
  - Empyema [None]
  - Liver abscess [None]
  - Infection [None]

NARRATIVE: CASE EVENT DATE: 20151117
